FAERS Safety Report 19475813 (Version 3)
Quarter: 2021Q3

REPORT INFORMATION
  Report Type: Spontaneous
  Country: DZ (occurrence: DZ)
  Receive Date: 20210630
  Receipt Date: 20210812
  Transmission Date: 20211014
  Serious: Yes (Other)
  Sender: FDA-Public Use
  Company Number: DZ-LEO PHARMA-337261

PATIENT
  Age: 29 Year
  Sex: Male

DRUGS (2)
  1. DAIVOBET [Suspect]
     Active Substance: BETAMETHASONE DIPROPIONATE\CALCIPOTRIENE
     Indication: PSORIASIS
     Dosage: GIVEN DURATION : AROUND ONE MONTH
  2. CLOTASONE [Concomitant]
     Indication: PRODUCT USED FOR UNKNOWN INDICATION

REACTIONS (2)
  - Product administration error [Unknown]
  - Adrenal insufficiency [Unknown]
